FAERS Safety Report 17260482 (Version 4)
Quarter: 2020Q1

REPORT INFORMATION
  Report Type: Report from Study
  Country: IT (occurrence: IT)
  Receive Date: 20200113
  Receipt Date: 20200124
  Transmission Date: 20200409
  Serious: Yes (Hospitalization)
  Sender: FDA-Public Use
  Company Number: IT-ROCHE-2518840

PATIENT
  Age: 71 Year
  Sex: Female
  Weight: 45 kg

DRUGS (9)
  1. IDELALISIB [Suspect]
     Active Substance: IDELALISIB
     Indication: B-CELL LYMPHOMA
     Dosage: NUMBER OF DOSAGES PER CYCLE: 8400?THERAPY CYCLE DURATION: 28?NUMBER OF CYCLES: 1?LAST ADMINISTRATION
     Route: 048
     Dates: start: 20191127
  2. IDELALISIB [Suspect]
     Active Substance: IDELALISIB
     Dosage: NUMBER OF DOSAGES PER CYCLE: 8400?THERAPY CYCLE DURATION: 28?NUMBER OF CYCLES: 1?LAST ADMINISTRATION
     Route: 048
     Dates: start: 20200109
  3. TRIMETHOPRIM SULFAMETHOXAZOLE [Concomitant]
     Active Substance: SULFAMETHOXAZOLE\TRIMETHOPRIM
  4. ACICLOVIR [Concomitant]
     Active Substance: ACYCLOVIR
  5. OBINUTUZUMAB. [Suspect]
     Active Substance: OBINUTUZUMAB
     Indication: B-CELL LYMPHOMA
     Dosage: LAST ADMINISTRATION DATE OF OBINUTUZUMAB BEFORE EVENT: 24/12/2019
     Route: 042
     Dates: start: 20191127
  6. SALMETEROL [Concomitant]
     Active Substance: SALMETEROL
  7. TIOTROPIUM BROMIDE [Concomitant]
     Active Substance: TIOTROPIUM BROMIDE
  8. LANSOPRAZOLE. [Concomitant]
     Active Substance: LANSOPRAZOLE
  9. BISOPROLOL [Concomitant]
     Active Substance: BISOPROLOL

REACTIONS (2)
  - Respiratory failure [Recovered/Resolved]
  - Pyrexia [Recovered/Resolved]

NARRATIVE: CASE EVENT DATE: 20200104
